FAERS Safety Report 8983844 (Version 4)
Quarter: 2014Q1

REPORT INFORMATION
  Report Type: Report from Study
  Country: IE (occurrence: IE)
  Receive Date: 20121224
  Receipt Date: 20140110
  Transmission Date: 20141002
  Serious: Yes (Hospitalization, Other)
  Sender: FDA-Public Use
  Company Number: IE-ROCHE-1171833

PATIENT
  Age: 81 Year
  Sex: 0
  Weight: 60.3 kg

DRUGS (7)
  1. RANIBIZUMAB [Suspect]
     Indication: AGE-RELATED MACULAR DEGENERATION
     Route: 065
     Dates: start: 20120228, end: 20120918
  2. RANIBIZUMAB [Suspect]
     Indication: CHOROIDAL NEOVASCULARISATION
     Route: 065
     Dates: end: 20121016
  3. RANIBIZUMAB [Suspect]
     Route: 065
  4. DUOPLAVIN [Concomitant]
     Indication: CEREBROVASCULAR ACCIDENT
     Route: 065
     Dates: start: 2006
  5. DUOPLAVIN [Concomitant]
     Indication: PROPHYLAXIS
  6. COVERSYL [Concomitant]
     Route: 065
     Dates: start: 2006
  7. LIPITOR [Concomitant]
     Indication: HYPERCHOLESTEROLAEMIA
     Route: 065
     Dates: start: 2006

REACTIONS (1)
  - Cerebrovascular accident [Recovered/Resolved]
